FAERS Safety Report 21733204 (Version 1)
Quarter: 2022Q4

REPORT INFORMATION
  Report Type: Spontaneous
  Country: IN (occurrence: IN)
  Receive Date: 20221215
  Receipt Date: 20221215
  Transmission Date: 20230112
  Serious: Yes (Hospitalization)
  Sender: FDA-Public Use
  Company Number: IN-MYLANLABS-2022M1139043

PATIENT
  Age: 30 Year
  Sex: Male

DRUGS (3)
  1. ONDANSETRON [Suspect]
     Active Substance: ONDANSETRON
     Indication: Product used for unknown indication
     Dosage: 4 MILLIGRAM, BID
     Route: 048
  2. TRAMADOL [Suspect]
     Active Substance: TRAMADOL
     Indication: Back pain
     Dosage: 50 MILLIGRAM, TID,THREE TIMES PER DAY
     Route: 048
  3. TRAMADOL [Suspect]
     Active Substance: TRAMADOL
     Indication: Insomnia

REACTIONS (4)
  - Acute kidney injury [Recovered/Resolved]
  - Rhabdomyolysis [Recovered/Resolved]
  - Myoglobinuria [Recovered/Resolved]
  - Serotonin syndrome [Recovered/Resolved]
